FAERS Safety Report 6109513-8 (Version None)
Quarter: 2009Q1

REPORT INFORMATION
  Report Type: 
  Country: None (occurrence: None)
  Receive Date: 20090310
  Receipt Date: 20090303
  Transmission Date: 20090719
  Serious: Yes (Other)
  Sender: FDA-Public Use
  Company Number: US-ELI_LILLY_AND_COMPANY-US200903000724

PATIENT
  Sex: Female

DRUGS (6)
  1. HUMALOG [Suspect]
  2. HUMALOG [Suspect]
  3. LANTUS [Concomitant]
  4. LEVOXYL [Concomitant]
  5. AMLODIPINE [Concomitant]
  6. TOPAMAX [Concomitant]

REACTIONS (2)
  - CONVULSION [None]
  - DRUG DISPENSING ERROR [None]
